FAERS Safety Report 7648513-3 (Version None)
Quarter: 2011Q3

REPORT INFORMATION
  Report Type: 
  Country: None (occurrence: None)
  Receive Date: 20110801
  Receipt Date: 20110728
  Transmission Date: 20111222
  Serious: Yes (Life-Threatening, Hospitalization)
  Sender: FDA-Public Use
  Company Number: CA-B.I. PHARMACEUTICALS,INC./RIDGEFIELD-2011-CN-01018CN

PATIENT
  Age: 76 Year
  Sex: Male
  Weight: 81.6 kg

DRUGS (11)
  1. PRADAXA [Suspect]
  2. PRADAXA [Suspect]
     Indication: ANTICOAGULANT THERAPY
     Dosage: 300 MG
     Route: 048
     Dates: start: 20110630, end: 20110722
  3. SIMVASTATIN [Concomitant]
     Dosage: 10 MG
     Route: 048
  4. METFORMIN HCL [Concomitant]
     Dosage: 500 MG
     Route: 048
  5. PRADAXA [Suspect]
     Indication: CEREBROVASCULAR ACCIDENT PROPHYLAXIS
  6. PRADAXA [Suspect]
  7. PRADAXA [Suspect]
     Indication: ATRIAL FIBRILLATION
  8. BISOPROLOL FUMARATE [Concomitant]
     Dosage: 10 MG
     Route: 048
     Dates: start: 20100501
  9. AMIODARONE HCL [Concomitant]
     Dosage: 100 MG
     Route: 048
     Dates: start: 20100501, end: 20110723
  10. PRADAXA [Suspect]
     Indication: ATRIAL FLUTTER
  11. PRADAXA [Suspect]
     Indication: CARDIAC ABLATION

REACTIONS (7)
  - HEPATITIS ACUTE [None]
  - PERICARDIAL EFFUSION [None]
  - MULTI-ORGAN FAILURE [None]
  - RENAL FAILURE ACUTE [None]
  - SEROMA [None]
  - COAGULOPATHY [None]
  - SEPSIS [None]
